FAERS Safety Report 20833105 (Version 2)
Quarter: 2022Q2

REPORT INFORMATION
  Report Type: Spontaneous
  Country: US (occurrence: US)
  Receive Date: 20220516
  Receipt Date: 20220622
  Transmission Date: 20220720
  Serious: No
  Sender: FDA-Public Use
  Company Number: US-BRISTOL-MYERS SQUIBB COMPANY-2022-035905

PATIENT
  Age: 67 Year
  Sex: Male

DRUGS (1)
  1. REVLIMID [Suspect]
     Active Substance: LENALIDOMIDE
     Indication: Plasma cell myeloma
     Dosage: TAKE 1 CAPSULE (10 MG TOTAL) BY MOUTH DAILY FOR 21 DAYS ON, FOLLOWED BY 7 DAYS OFF?DRUG ONGOING
     Route: 048
     Dates: start: 20200722

REACTIONS (4)
  - Dyspnoea [Unknown]
  - Headache [Unknown]
  - Rhinorrhoea [Unknown]
  - Product dose omission issue [Unknown]
